FAERS Safety Report 6810813-4 (Version None)
Quarter: 2010Q2

REPORT INFORMATION
  Report Type: 
  Country: None (occurrence: None)
  Receive Date: 20100630
  Receipt Date: 20080422
  Transmission Date: 20101027
  Serious: No
  Sender: FDA-Public Use
  Company Number: US-PFIZER INC-2008029339

PATIENT
  Sex: Female
  Weight: 71.818 kg

DRUGS (6)
  1. ESTRING [Suspect]
     Indication: MENOPAUSE
     Dates: start: 20050101
  2. ESTRING [Suspect]
     Indication: VULVOVAGINAL DRYNESS
  3. ESTRING [Suspect]
     Indication: VAGINAL INFECTION
  4. LEVOTHYROXINE SODIUM [Concomitant]
  5. ZYRTEC [Concomitant]
  6. DIAZIDE [Concomitant]

REACTIONS (2)
  - POOR QUALITY DRUG ADMINISTERED [None]
  - VAGINAL INFECTION [None]
